FAERS Safety Report 25689335 (Version 5)
Quarter: 2025Q3

REPORT INFORMATION
  Report Type: Spontaneous
  Country: JP (occurrence: JP)
  Receive Date: 20250818
  Receipt Date: 20250925
  Transmission Date: 20251021
  Serious: Yes (Other)
  Sender: MERCK SHARP & DOHME LLC
  Company Number: JP-009507513-2278952

PATIENT
  Age: 6 Decade
  Sex: Male

DRUGS (6)
  1. KEYTRUDA [Suspect]
     Active Substance: PEMBROLIZUMAB
     Indication: Renal cell carcinoma
     Dosage: 7 CYCLE, STRENGTH:100MG
     Route: 041
     Dates: start: 20250313
  2. LENVIMA [Suspect]
     Active Substance: LENVATINIB
     Indication: Renal cell carcinoma
     Dosage: STRENGTH:10MG
     Route: 048
     Dates: start: 20250313, end: 20250402
  3. LENVIMA [Suspect]
     Active Substance: LENVATINIB
     Indication: Renal cell carcinoma
     Dosage: STRENGTH:10MG, REDUCED TO 10MG, 2 COURSES.
     Route: 048
     Dates: start: 20250403, end: 202506
  4. LENVIMA [Suspect]
     Active Substance: LENVATINIB
     Indication: Renal cell carcinoma
     Dosage: CYCLE 7
     Route: 048
     Dates: start: 2025
  5. LENVIMA [Suspect]
     Active Substance: LENVATINIB
     Indication: Renal cell carcinoma
     Dosage: CYCLE 6
     Route: 048
     Dates: start: 2025, end: 2025
  6. LENVIMA [Suspect]
     Active Substance: LENVATINIB
     Indication: Renal cell carcinoma
     Dosage: STRENGTH:10MG, CYCLE 5
     Route: 048
     Dates: start: 202507, end: 2025

REACTIONS (4)
  - Nephrectomy [Unknown]
  - Proteinuria [Recovered/Resolved]
  - Hypertension [Recovering/Resolving]
  - Dysuria [Recovered/Resolved]

NARRATIVE: CASE EVENT DATE: 20250403
